FAERS Safety Report 8558094-8 (Version None)
Quarter: 2012Q3

REPORT INFORMATION
  Report Type: 
  Country: None (occurrence: None)
  Receive Date: 20120801
  Receipt Date: 20120723
  Transmission Date: 20120928
  Serious: Yes (Hospitalization)
  Sender: FDA-Public Use
  Company Number: US-ACTELION-A-NJ2012-59734

PATIENT
  Age: 35 Year
  Sex: Female

DRUGS (2)
  1. HEPARIN [Concomitant]
  2. EPOPROSTENOL SODIUM [Suspect]
     Indication: PULMONARY ARTERIAL HYPERTENSION
     Dosage: 5 NG/KG, PER MIN
     Route: 041
     Dates: start: 20111201

REACTIONS (4)
  - TACHYCARDIA [None]
  - EAR INFECTION [None]
  - BACTERAEMIA [None]
  - NAUSEA [None]
